FAERS Safety Report 21045992 (Version 2)
Quarter: 2022Q3

REPORT INFORMATION
  Report Type: Report from Study
  Country: GB (occurrence: None)
  Receive Date: 20220706
  Receipt Date: 20220713
  Transmission Date: 20221027
  Serious: Yes (Hospitalization)
  Sender: FDA-Public Use
  Company Number: GB-ROCHE-3062191

PATIENT
  Age: 61 Year
  Sex: Male
  Weight: 122.8 kg

DRUGS (39)
  1. GLOFITAMAB [Suspect]
     Active Substance: GLOFITAMAB
     Indication: B-cell lymphoma refractory
     Dosage: DOSE LAST STUDY DRUG ADMIN PRIOR AE AND SAE 10 MG. ?ON 22/MAR/2022, HE RECEIVED MOST RECENT DOSE OF
     Route: 042
     Dates: start: 20220315
  2. OBINUTUZUMAB [Suspect]
     Active Substance: OBINUTUZUMAB
     Indication: B-cell lymphoma refractory
     Dosage: DOSE LAST STUDY DRUG ADMIN PRIOR AE AND SAE 1000 MG. TOTAL VOLUME PRIOR AE AND SAE 250 ML. ?ON 08/MA
     Route: 042
     Dates: start: 20220308
  3. ZIRCONIUM ZR-89-DESFERRIOXAMINE-IAB22M2C [Suspect]
     Active Substance: ZIRCONIUM ZR-89-DESFERRIOXAMINE-IAB22M2C
     Indication: B-cell lymphoma refractory
     Dosage: START DATE OF MOST RECENT DOSE OF STUDY DRUG PRIOR TO SAE 03-MAR-2022 9:19 AM?TOTAL VOLUME PRIOR SAE
     Route: 042
     Dates: start: 20220303
  4. TOCILIZUMAB [Suspect]
     Active Substance: TOCILIZUMAB
     Indication: B-cell lymphoma refractory
     Dosage: START DATE OF MOST RECENT DOSE OF STUDY DRUG PRIOR TO SAE 15-MAR-2022 11:13 PM?DOSE LAST STUDY DRUG
     Route: 042
     Dates: start: 20220315
  5. TOCILIZUMAB [Concomitant]
     Active Substance: TOCILIZUMAB
     Indication: Cytokine release syndrome
     Route: 065
     Dates: start: 20220315, end: 20220317
  6. TOCILIZUMAB [Concomitant]
     Active Substance: TOCILIZUMAB
     Route: 065
     Dates: start: 20220406, end: 20220406
  7. METHYLPREDNISOLONE [Concomitant]
     Active Substance: METHYLPREDNISOLONE
     Route: 042
     Dates: start: 20220322, end: 20220322
  8. METHYLPREDNISOLONE [Concomitant]
     Active Substance: METHYLPREDNISOLONE
     Route: 042
     Dates: start: 20220315, end: 20220315
  9. METHYLPREDNISOLONE [Concomitant]
     Active Substance: METHYLPREDNISOLONE
     Route: 042
     Dates: start: 20220405, end: 20220405
  10. ACETAMINOPHEN [Concomitant]
     Active Substance: ACETAMINOPHEN
     Indication: Oropharyngeal pain
     Route: 048
     Dates: start: 20220315, end: 20220315
  11. ACETAMINOPHEN [Concomitant]
     Active Substance: ACETAMINOPHEN
     Indication: Cytokine release syndrome
     Route: 048
     Dates: start: 20220322, end: 20220322
  12. ACETAMINOPHEN [Concomitant]
     Active Substance: ACETAMINOPHEN
     Route: 048
     Dates: start: 20220308, end: 20220308
  13. ACETAMINOPHEN [Concomitant]
     Active Substance: ACETAMINOPHEN
     Route: 048
     Dates: start: 20220405, end: 20220405
  14. ACETAMINOPHEN [Concomitant]
     Active Substance: ACETAMINOPHEN
     Route: 048
     Dates: start: 20220426, end: 20220426
  15. ACETAMINOPHEN [Concomitant]
     Active Substance: ACETAMINOPHEN
     Dates: start: 20220315, end: 20220317
  16. ACETAMINOPHEN [Concomitant]
     Active Substance: ACETAMINOPHEN
     Dates: start: 20220324, end: 20220328
  17. ACETAMINOPHEN [Concomitant]
     Active Substance: ACETAMINOPHEN
     Route: 048
     Dates: start: 20220607, end: 20220607
  18. CHLORPHENIRAMINE MALEATE [Concomitant]
     Active Substance: CHLORPHENIRAMINE MALEATE
     Indication: Cytokine release syndrome
     Route: 042
     Dates: start: 20220308, end: 20220308
  19. CHLORPHENIRAMINE MALEATE [Concomitant]
     Active Substance: CHLORPHENIRAMINE MALEATE
     Route: 042
     Dates: start: 20220315, end: 20220315
  20. CHLORPHENIRAMINE MALEATE [Concomitant]
     Active Substance: CHLORPHENIRAMINE MALEATE
     Route: 042
     Dates: start: 20220322, end: 20220322
  21. CHLORPHENIRAMINE MALEATE [Concomitant]
     Active Substance: CHLORPHENIRAMINE MALEATE
     Route: 042
     Dates: start: 20220405, end: 20220405
  22. CHLORPHENIRAMINE MALEATE [Concomitant]
     Active Substance: CHLORPHENIRAMINE MALEATE
     Route: 042
     Dates: start: 20220426, end: 20220426
  23. CHLORPHENIRAMINE MALEATE [Concomitant]
     Active Substance: CHLORPHENIRAMINE MALEATE
     Dates: start: 20220317, end: 20220317
  24. CHLORPHENIRAMINE MALEATE [Concomitant]
     Active Substance: CHLORPHENIRAMINE MALEATE
     Route: 042
     Dates: start: 20220607, end: 20220607
  25. COTRIMOXAZOLE [Concomitant]
     Active Substance: SULFAMETHOXAZOLE\TRIMETHOPRIM
     Dates: start: 20210924
  26. ACYCLOVIR [Concomitant]
     Active Substance: ACYCLOVIR
     Dates: start: 20210924
  27. VORICONAZOLE [Concomitant]
     Active Substance: VORICONAZOLE
     Dates: start: 20210924
  28. CHOLECALCIFEROL [Concomitant]
     Active Substance: CHOLECALCIFEROL
     Dates: start: 20220316, end: 20220323
  29. ENOXAPARIN [Concomitant]
     Active Substance: ENOXAPARIN
     Dates: start: 20220314, end: 20220322
  30. ENOXAPARIN [Concomitant]
     Active Substance: ENOXAPARIN
     Dates: start: 20220326, end: 20220327
  31. ENOXAPARIN [Concomitant]
     Active Substance: ENOXAPARIN
     Dates: start: 20220405, end: 20220409
  32. LANSOPRAZOLE [Concomitant]
     Active Substance: LANSOPRAZOLE
     Dates: start: 20220316, end: 20220321
  33. LANSOPRAZOLE [Concomitant]
     Active Substance: LANSOPRAZOLE
     Dates: start: 20220324, end: 20220328
  34. OCTENIDINE [Concomitant]
     Active Substance: OCTENIDINE
     Route: 061
     Dates: start: 20220316, end: 20220322
  35. OCTENIDINE [Concomitant]
     Active Substance: OCTENIDINE
     Route: 061
     Dates: start: 20220325, end: 20220328
  36. MAGNESIUM ASPARTATE [Concomitant]
     Active Substance: MAGNESIUM ASPARTATE
     Indication: Hypomagnesaemia
     Dates: start: 20220406, end: 20220409
  37. GENTAMICIN [Concomitant]
     Active Substance: GENTAMICIN
     Dates: start: 20220324, end: 20220324
  38. MEROPENEM [Concomitant]
     Active Substance: MEROPENEM
     Indication: Cytokine release syndrome
     Dates: start: 20220324, end: 20220326
  39. MEROPENEM [Concomitant]
     Active Substance: MEROPENEM
     Dates: start: 20220315, end: 20220320

REACTIONS (1)
  - Depressed level of consciousness [Recovered/Resolved]

NARRATIVE: CASE EVENT DATE: 20220324
